FAERS Safety Report 15341272 (Version 3)
Quarter: 2020Q1

REPORT INFORMATION
  Report Type: Spontaneous
  Country: SI (occurrence: SI)
  Receive Date: 20180831
  Receipt Date: 20200103
  Transmission Date: 20200409
  Serious: Yes (Hospitalization, Other)
  Sender: FDA-Public Use
  Company Number: SI-VIFOR (INTERNATIONAL) INC.-VIT-2018-08589

PATIENT
  Age: 57 Year
  Sex: Male
  Weight: 107 kg

DRUGS (29)
  1. AMLODIPINE [Suspect]
     Active Substance: AMLODIPINE BESYLATE
     Route: 065
  2. TONOCARDIN [Suspect]
     Active Substance: DOXAZOSIN MESYLATE
     Indication: PRODUCT USED FOR UNKNOWN INDICATION
     Route: 065
  3. EDEMID [Suspect]
     Active Substance: FUROSEMIDE
     Indication: PRODUCT USED FOR UNKNOWN INDICATION
     Dosage: 125 MG PLUS 40 MG IN THE AFTERNOON
     Route: 065
  4. EDEMID [Suspect]
     Active Substance: FUROSEMIDE
     Dosage: 500 PLUS 250 MG IN THE MORNING
     Route: 065
  5. TRAJENTA [Suspect]
     Active Substance: LINAGLIPTIN
     Route: 065
  6. MIRCERA [Suspect]
     Active Substance: METHOXY POLYETHYLENE GLYCOL-EPOETIN BETA
     Route: 065
     Dates: start: 20171111
  7. PRENESSA [Suspect]
     Active Substance: PERINDOPRIL
     Route: 065
  8. ASPIRIN PROTECT [Concomitant]
     Active Substance: ASPIRIN
     Indication: CHRONIC KIDNEY DISEASE
  9. TRAJENTA [Suspect]
     Active Substance: LINAGLIPTIN
     Indication: PRODUCT USED FOR UNKNOWN INDICATION
     Route: 065
  10. PLIVIT D3 [Suspect]
     Active Substance: CHOLECALCIFEROL
     Indication: PRODUCT USED FOR UNKNOWN INDICATION
     Route: 065
  11. MAREVAN [Suspect]
     Active Substance: WARFARIN SODIUM
     Indication: PRODUCT USED FOR UNKNOWN INDICATION
     Dosage: ACCORDING TO SCHEME
     Route: 065
  12. COUPET [Suspect]
     Active Substance: ROSUVASTATIN CALCIUM
     Indication: PRODUCT USED FOR UNKNOWN INDICATION
     Route: 065
  13. NEPHROTRANS [Suspect]
     Active Substance: SODIUM BICARBONATE
     Indication: PRODUCT USED FOR UNKNOWN INDICATION
     Route: 065
  14. VENTOLIN [Suspect]
     Active Substance: ALBUTEROL SULFATE
     Indication: PRODUCT USED FOR UNKNOWN INDICATION
     Dosage: 2 BREATH-INS WHEN NEEDED
     Route: 065
  15. AMLODIPINE [Suspect]
     Active Substance: AMLODIPINE BESYLATE
     Indication: PRODUCT USED FOR UNKNOWN INDICATION
     Route: 065
  16. EDEMID [Suspect]
     Active Substance: FUROSEMIDE
     Dosage: 125 MG IN THE MORNING PLUS 40 MG) IN CASE OF SWELLING
     Route: 065
  17. PRENESSA [Suspect]
     Active Substance: PERINDOPRIL
     Indication: PRODUCT USED FOR UNKNOWN INDICATION
     Route: 065
  18. ROCALTROL [Suspect]
     Active Substance: CALCITRIOL
     Indication: PRODUCT USED FOR UNKNOWN INDICATION
     Route: 065
  19. ENTRESTO [Suspect]
     Active Substance: SACUBITRIL\VALSARTAN
     Indication: PRODUCT USED FOR UNKNOWN INDICATION
     Dosage: 49/51
     Route: 065
  20. ENTRESTO [Suspect]
     Active Substance: SACUBITRIL\VALSARTAN
     Dosage: 49/51
     Route: 065
  21. ENTRESTO [Suspect]
     Active Substance: SACUBITRIL\VALSARTAN
     Dosage: 97/103
     Route: 065
  22. AMLODIPINE [Suspect]
     Active Substance: AMLODIPINE BESYLATE
     Route: 065
  23. CONCOR [Suspect]
     Active Substance: BISOPROLOL FUMARATE
     Indication: PRODUCT USED FOR UNKNOWN INDICATION
     Route: 065
  24. EDEMID [Suspect]
     Active Substance: FUROSEMIDE
     Dosage: 125 MG IN THE MORNING PLUS 40 MG AT 4 PM
     Route: 065
  25. MAREVAN [Suspect]
     Active Substance: WARFARIN SODIUM
     Dosage: ACCORDING TO SCHEME
     Route: 065
  26. RENVELA [Suspect]
     Active Substance: SEVELAMER CARBONATE
     Indication: PRODUCT USED FOR UNKNOWN INDICATION
     Route: 065
  27. MIRCERA [Suspect]
     Active Substance: METHOXY POLYETHYLENE GLYCOL-EPOETIN BETA
     Indication: PRODUCT USED FOR UNKNOWN INDICATION
     Route: 065
  28. AMLODIPINE [Suspect]
     Active Substance: AMLODIPINE BESYLATE
     Dosage: 2*5
     Route: 065
  29. INSULIN [Concomitant]
     Active Substance: INSULIN NOS
     Indication: NEPHRECTOMY

REACTIONS (47)
  - Blood iron decreased [Unknown]
  - Left atrial enlargement [Unknown]
  - Mitral valve thickening [Unknown]
  - Pulmonary hypertension [Unknown]
  - Platelet count decreased [Unknown]
  - Serum ferritin increased [Unknown]
  - Acute pulmonary oedema [Recovered/Resolved]
  - Blood chloride increased [Unknown]
  - Anaemia [Unknown]
  - Pulmonary embolism [Unknown]
  - Dry skin [Unknown]
  - Blood uric acid increased [Unknown]
  - Blood glucose increased [Unknown]
  - Mitral valve incompetence [Unknown]
  - Tricuspid valve incompetence [Unknown]
  - C-reactive protein increased [Unknown]
  - Eosinophil count increased [Unknown]
  - Left ventricular dysfunction [Unknown]
  - Right atrial enlargement [Unknown]
  - Haemoglobin decreased [Unknown]
  - Red cell distribution width increased [Unknown]
  - Blood pressure systolic decreased [Unknown]
  - Lymphocyte count decreased [Unknown]
  - Hypochromasia [Unknown]
  - Red blood cell sedimentation rate increased [Unknown]
  - Diastolic dysfunction [Unknown]
  - Ventricular hyperkinesia [Unknown]
  - Mean platelet volume increased [Unknown]
  - Blood phosphorus increased [Unknown]
  - Electrocardiogram T wave inversion [Unknown]
  - Dyspnoea [Unknown]
  - Blood triglycerides increased [Unknown]
  - Electrocardiogram ST segment elevation [Unknown]
  - Left ventricular enlargement [Unknown]
  - Blood urea increased [Unknown]
  - Blood creatinine increased [Unknown]
  - Hypertension [Unknown]
  - Respiratory failure [Unknown]
  - Left ventricular hypertrophy [Unknown]
  - Aortic valve incompetence [Unknown]
  - Oedema [Unknown]
  - Hypervolaemia [Unknown]
  - Red blood cell count decreased [Unknown]
  - High density lipoprotein decreased [Unknown]
  - Hypertensive heart disease [Unknown]
  - Cardiac failure [Unknown]
  - Haematocrit decreased [Unknown]

NARRATIVE: CASE EVENT DATE: 201706
